FAERS Safety Report 5569808-3 (Version None)
Quarter: 2007Q4

REPORT INFORMATION
  Report Type: 
  Country: None (occurrence: None)
  Receive Date: 20071218
  Receipt Date: 20071203
  Transmission Date: 20080405
  Serious: Yes (Hospitalization)
  Sender: FDA-Public Use
  Company Number: 2007S1013118

PATIENT
  Age: 69 Year
  Sex: Female

DRUGS (9)
  1. FUROSEMIDE [Suspect]
     Indication: DIURETIC THERAPY
     Dosage: 40 MG
  2. ACOMPLIA [Suspect]
     Indication: WEIGHT DECREASED
     Dosage: 20 MG; ORAL
     Route: 048
     Dates: start: 20070727, end: 20071029
  3. ADCAL-D3 [Concomitant]
  4. ASPIRIN [Concomitant]
  5. DOXAZOSIN [Concomitant]
  6. FELODIPINE [Concomitant]
  7. FERROUS SULFATE TAB [Concomitant]
  8. PARACODOL [Concomitant]
  9. SIMVASTATIN [Concomitant]

REACTIONS (4)
  - BLOOD POTASSIUM DECREASED [None]
  - DIZZINESS [None]
  - MALAISE [None]
  - VOMITING [None]
